FAERS Safety Report 5341250-X (Version None)
Quarter: 2007Q2

REPORT INFORMATION
  Report Type: 
  Country: None (occurrence: None)
  Receive Date: 20070404
  Receipt Date: 20070126
  Transmission Date: 20071010
  Serious: Yes (Hospitalization, Other)
  Sender: FDA-Public Use
  Company Number: 2007007323

PATIENT
  Age: 25 Year
  Sex: Female
  Weight: 77.1 kg

DRUGS (1)
  1. GEODON [Suspect]
     Indication: BIPOLAR DISORDER
     Dosage: 160 MG (80 MG, BID; EVERY DAY)
     Dates: start: 20070110, end: 20070113

REACTIONS (1)
  - DYSTONIA [None]
